FAERS Safety Report 16885175 (Version 7)
Quarter: 2020Q1

REPORT INFORMATION
  Report Type: Spontaneous
  Country: US (occurrence: US)
  Receive Date: 20191004
  Receipt Date: 20200313
  Transmission Date: 20200409
  Serious: Yes (Hospitalization, Other)
  Sender: FDA-Public Use
  Company Number: US-PFIZER INC-2017529284

PATIENT
  Age: 66 Year
  Sex: Female
  Weight: 111 kg

DRUGS (7)
  1. FOLIC ACID. [Concomitant]
     Active Substance: FOLIC ACID
     Dosage: 4 MG, DAILY
     Dates: start: 20180524
  2. PREDNISONE. [Concomitant]
     Active Substance: PREDNISONE
     Dosage: 5 MG, DAILY
     Dates: start: 20191023
  3. XELJANZ XR [Suspect]
     Active Substance: TOFACITINIB CITRATE
     Indication: MYALGIA
     Dosage: 11 MG, 1X/DAY
     Dates: start: 201702
  4. XELJANZ XR [Suspect]
     Active Substance: TOFACITINIB CITRATE
     Indication: BONE PAIN
  5. TIZANIDINE. [Concomitant]
     Active Substance: TIZANIDINE
     Dosage: 2 MG, 1X/DAY
     Dates: start: 20190917
  6. XELJANZ XR [Suspect]
     Active Substance: TOFACITINIB CITRATE
     Indication: RHEUMATOID ARTHRITIS
     Dosage: 11 MG, 1X/DAY
     Dates: start: 2014
  7. VITAMIN D [Concomitant]
     Active Substance: VITAMIN D NOS
     Dosage: 50000 IU, WEEKLY
     Dates: start: 201609

REACTIONS (11)
  - Systemic lupus erythematosus [Unknown]
  - Neuropathy peripheral [Unknown]
  - Arthropathy [Unknown]
  - Neuralgia [Unknown]
  - Fibromyalgia [Unknown]
  - Asthma [Unknown]
  - Paraesthesia [Unknown]
  - Polymyositis [Unknown]
  - Sciatica [Unknown]
  - Psoriasis [Unknown]
  - Malaise [Unknown]
